FAERS Safety Report 7267487-0 (Version None)
Quarter: 2011Q1

REPORT INFORMATION
  Report Type: 
  Country: None (occurrence: None)
  Receive Date: 20110201
  Receipt Date: 20110119
  Transmission Date: 20110831
  Serious: Yes (Life-Threatening, Hospitalization)
  Sender: FDA-Public Use
  Company Number: ES-JNJFOC-20110104159

PATIENT
  Age: 33 Year
  Sex: Male

DRUGS (3)
  1. REMICADE [Suspect]
     Route: 042
  2. OMEPRAZOLE [Concomitant]
     Indication: PROPHYLAXIS
  3. REMICADE [Suspect]
     Indication: CROHN'S DISEASE
     Dosage: INCREASED DOSE (UNSPECIFIED); DECREASED INTERVAL (6 TO 7 WEEKS)
     Route: 042

REACTIONS (6)
  - RESPIRATORY FAILURE [None]
  - PERITONITIS [None]
  - ILEAL PERFORATION [None]
  - SEPSIS [None]
  - PULMONARY EMBOLISM [None]
  - RENAL FAILURE [None]
